FAERS Safety Report 16459986 (Version 3)
Quarter: 2020Q3

REPORT INFORMATION
  Report Type: Report from Study
  Country: LT (occurrence: LT)
  Receive Date: 20190620
  Receipt Date: 20200924
  Transmission Date: 20201102
  Serious: Yes (Hospitalization, Other)
  Sender: FDA-Public Use
  Company Number: LT-BAUSCH-BL-2019-017504

PATIENT
  Age: 46 Year
  Sex: Male

DRUGS (25)
  1. DELAMANID [Suspect]
     Active Substance: DELAMANID
     Indication: PULMONARY TUBERCULOSIS
     Route: 048
     Dates: start: 20190318, end: 20190829
  2. DICLOFENAC [Suspect]
     Active Substance: DICLOFENAC
     Indication: CHEST PAIN
     Route: 030
     Dates: start: 20181228, end: 20181228
  3. CYCLOSERINE. [Concomitant]
     Active Substance: CYCLOSERINE
     Indication: PULMONARY TUBERCULOSIS
     Route: 048
     Dates: start: 20190218, end: 20190219
  4. CYCLOSERINE. [Concomitant]
     Active Substance: CYCLOSERINE
     Dosage: 750 MG, ONCE DAILY
     Route: 048
     Dates: start: 20181219, end: 20190207
  5. METOCLOPRAMIDE. [Concomitant]
     Active Substance: METOCLOPRAMIDE
     Indication: NAUSEA
     Route: 048
     Dates: start: 20181228, end: 20190209
  6. METOCLOPRAMIDE. [Concomitant]
     Active Substance: METOCLOPRAMIDE
     Indication: VOMITING
     Dosage: 10 MG, ONCE DAILY
     Route: 048
     Dates: start: 20190503, end: 20190503
  7. KETOPROFEN. [Suspect]
     Active Substance: KETOPROFEN
     Indication: CHEST PAIN
     Dosage: 100 MG, ONCE DAILY (AS REQUESTED NOT MORE)
     Route: 030
     Dates: start: 20181230, end: 20190205
  8. PROTHIONAMIDE [Concomitant]
     Active Substance: PROTIONAMIDE
     Indication: PULMONARY TUBERCULOSIS
     Dosage: IN THE MORNING
     Route: 048
     Dates: start: 20190301, end: 20190301
  9. DICLOFENAC [Suspect]
     Active Substance: DICLOFENAC
     Indication: CHEST PAIN
     Dosage: AS REQUESTED
     Route: 048
     Dates: start: 20181228, end: 20190107
  10. CYCLOSERINE. [Concomitant]
     Active Substance: CYCLOSERINE
     Dosage: 750 MG, ONCE DAILY (IN THE MORNING)
     Route: 048
     Dates: start: 20190301, end: 20190301
  11. CYCLOSERINE. [Concomitant]
     Active Substance: CYCLOSERINE
     Dosage: 500 MG, ONCE DAILY
     Route: 048
     Dates: start: 20190528
  12. METOCLOPRAMIDE. [Concomitant]
     Active Substance: METOCLOPRAMIDE
     Route: 048
     Dates: start: 20190526, end: 20190527
  13. DELAMANID [Suspect]
     Active Substance: DELAMANID
     Route: 048
     Dates: start: 20190109, end: 20190207
  14. PROTHIONAMIDE [Concomitant]
     Active Substance: PROTIONAMIDE
     Route: 048
     Dates: start: 20190218, end: 20190219
  15. LINEZOLID. [Concomitant]
     Active Substance: LINEZOLID
     Indication: PULMONARY TUBERCULOSIS
     Dosage: IN THE MORNING
     Route: 048
     Dates: start: 20190301, end: 20190301
  16. DELAMANID [Suspect]
     Active Substance: DELAMANID
     Dosage: 200 MG, QD
     Route: 048
     Dates: start: 20191113, end: 20200903
  17. LINEZOLID. [Concomitant]
     Active Substance: LINEZOLID
     Route: 048
     Dates: start: 20190318, end: 20190527
  18. DELAMANID [Suspect]
     Active Substance: DELAMANID
     Route: 048
     Dates: start: 20190218, end: 20190219
  19. DELAMANID [Suspect]
     Active Substance: DELAMANID
     Route: 048
     Dates: start: 20190301, end: 20190301
  20. AMIKACIN. [Suspect]
     Active Substance: AMIKACIN
     Indication: PULMONARY TUBERCULOSIS
     Dosage: 1 G, QD
     Route: 030
     Dates: start: 20181219, end: 20190207
  21. PROTHIONAMIDE [Concomitant]
     Active Substance: PROTIONAMIDE
     Route: 048
     Dates: start: 20190325, end: 20190503
  22. PROTHIONAMIDE [Concomitant]
     Active Substance: PROTIONAMIDE
     Route: 048
     Dates: start: 20190109, end: 20190210
  23. CYCLOSERINE. [Concomitant]
     Active Substance: CYCLOSERINE
     Dosage: 500 MG, ONCE DAILY
     Route: 048
     Dates: start: 20190328, end: 20190521
  24. LINEZOLID. [Concomitant]
     Active Substance: LINEZOLID
     Route: 048
     Dates: start: 20181219, end: 20190210
  25. LINEZOLID. [Concomitant]
     Active Substance: LINEZOLID
     Route: 048
     Dates: start: 20190218, end: 20190219

REACTIONS (3)
  - Pyopneumothorax [Recovered/Resolved with Sequelae]
  - Acute kidney injury [Recovered/Resolved with Sequelae]
  - Vomiting [Recovered/Resolved]

NARRATIVE: CASE EVENT DATE: 20190124
